FAERS Safety Report 7648549-2 (Version None)
Quarter: 2011Q3

REPORT INFORMATION
  Report Type: 
  Country: None (occurrence: None)
  Receive Date: 20110801
  Receipt Date: 20110719
  Transmission Date: 20111222
  Serious: Yes (Other)
  Sender: FDA-Public Use
  Company Number: PHHY2011US65121

PATIENT
  Age: 67 Year
  Sex: Male

DRUGS (10)
  1. ASPIRIN [Concomitant]
     Dosage: 81 MG, 1XDAY
  2. LIPITOR [Concomitant]
     Dosage: 10 MG, 1XDAY
  3. FOSINOPRIL SODIUM [Concomitant]
     Dosage: 10 MG, 1XDAY
  4. FUROSEMIDE [Concomitant]
     Dosage: 40 MG,
  5. FOLIC ACID [Concomitant]
     Dosage: 1 MG, 1XDAY
  6. POTASSIUM CHLORIDE ER [Concomitant]
     Dosage: 200 MG, 1XDAY
  7. PRIMIDONE [Suspect]
     Dosage: 2 DF, TID
  8. TEGRETOL [Suspect]
     Dosage: 1200 MG,BID
     Route: 048
  9. CARBAMAZEPINE [Suspect]
     Dosage: TWICE A DAY
  10. NORVASX [Concomitant]
     Dosage: 10 MG, 1X DAY

REACTIONS (3)
  - AMNESIA [None]
  - EYE DISORDER [None]
  - TOXICITY TO VARIOUS AGENTS [None]
